FAERS Safety Report 15143948 (Version 1)
Quarter: 2018Q3

REPORT INFORMATION
  Report Type: Spontaneous
  Country: ES (occurrence: ES)
  Receive Date: 20180713
  Receipt Date: 20180713
  Transmission Date: 20181010
  Serious: Yes (Other)
  Sender: FDA-Public Use
  Company Number: ES-BAXTER-2018BAX018891

PATIENT
  Sex: Female

DRUGS (2)
  1. SUERO GLUCOSALINO BAXTER [Suspect]
     Active Substance: DEXTROSE\SODIUM CHLORIDE
     Indication: PRODUCT USED FOR UNKNOWN INDICATION
     Route: 065
  2. SOLSAL?SALINE SOLUTION (UNSPECIFIED) [Suspect]
     Active Substance: SODIUM CHLORIDE
     Indication: THERMAL BURN
     Route: 065
     Dates: start: 20180527

REACTIONS (3)
  - Hypernatraemia [Unknown]
  - Condition aggravated [Unknown]
  - Drug administration error [Unknown]

NARRATIVE: CASE EVENT DATE: 20180527
